FAERS Safety Report 5145080-3 (Version None)
Quarter: 2006Q4

REPORT INFORMATION
  Report Type: 
  Country: None (occurrence: None)
  Receive Date: 20061107
  Receipt Date: 20060215
  Transmission Date: 20070319
  Serious: Yes (Disabling, Other)
  Sender: FDA-Public Use
  Company Number: GB-BRISTOL-MYERS SQUIBB COMPANY-13284138

PATIENT
  Age: 12 Year
  Sex: Male
  Weight: 25 kg

DRUGS (5)
  1. DIDANOSINE [Suspect]
     Indication: HIV INFECTION
     Route: 048
     Dates: start: 20050204, end: 20051202
  2. VIREAD [Suspect]
     Indication: HIV INFECTION
     Route: 048
     Dates: start: 20050204, end: 20051202
  3. KALETRA [Concomitant]
     Indication: HIV INFECTION
     Route: 048
     Dates: start: 20050715, end: 20051203
  4. INDINIVIR SULFATE [Concomitant]
     Indication: HIV INFECTION
  5. ATAZANAVIR [Concomitant]
     Indication: HIV INFECTION
     Route: 048
     Dates: start: 20050204, end: 20051202

REACTIONS (13)
  - ABDOMINAL PAIN [None]
  - BLOOD CREATININE INCREASED [None]
  - BLOOD PHOSPHORUS DECREASED [None]
  - CD4 LYMPHOCYTES DECREASED [None]
  - DEHYDRATION [None]
  - FATIGUE [None]
  - GLYCOSURIA [None]
  - HAEMATURIA [None]
  - NAUSEA [None]
  - POLYURIA [None]
  - PROTEINURIA [None]
  - RENAL TUBULAR DISORDER [None]
  - VOMITING [None]
